FAERS Safety Report 4263666-5 (Version None)
Quarter: 2004Q1

REPORT INFORMATION
  Report Type: 
  Country: None (occurrence: None)
  Receive Date: 20040102
  Receipt Date: 20031224
  Transmission Date: 20041129
  Serious: Yes (Disabling)
  Sender: FDA-Public Use
  Company Number: 03P-167-0245763-00

PATIENT
  Age: 20 Year
  Sex: Female

DRUGS (2)
  1. VALPROATE SODIUM [Suspect]
     Indication: EPILEPSY
     Dosage: 700 MG, 1 IN 1 D, PER ORAL; 300 MG, 1 IN 1 D, PER ORAL
     Route: 048
     Dates: start: 20020601
  2. CARBAMAZEPINE [Concomitant]

REACTIONS (1)
  - DYSTONIA [None]
